FAERS Safety Report 5819403-3 (Version None)
Quarter: 2008Q3

REPORT INFORMATION
  Report Type: 
  Country: None (occurrence: None)
  Receive Date: 20080717
  Receipt Date: 20080703
  Transmission Date: 20090109
  Serious: Yes (Other)
  Sender: FDA-Public Use
  Company Number: MIN-00382

PATIENT
  Age: 48 Year
  Sex: Male

DRUGS (14)
  1. MINOCYCLINE HCL [Suspect]
     Indication: STENOTROPHOMONAS SEPSIS
     Dosage: 100 MG/DAY
  2. MEROPENEM TRIHYDRATE [Concomitant]
  3. METHYLPREDNISOLONE [Concomitant]
  4. LAMIVUDINE [Concomitant]
  5. AMPICILLIN AND SULBACTAM [Concomitant]
  6. CEFOTAXIME SODIUM [Concomitant]
  7. TACROLIMUS (FK506) [Concomitant]
  8. PANIPENEM BETAMIPRON [Concomitant]
  9. TEICOPLANIN [Concomitant]
  10. TRIMETHOPRIM-SULFAMETHOXANZOLE [Concomitant]
  11. TAZOBACTAM PIPERACILLIN HYDRATE [Concomitant]
  12. CIPROFLOXACIN HYDROCHLORIDE [Concomitant]
  13. IMMUNE GLOBULIN INTRAVENOUS (HUMAN) [Concomitant]
  14. TORAYMYXIN (POLYMYXIN B IMMOBILIZED FIBER) [Concomitant]

REACTIONS (3)
  - ALANINE AMINOTRANSFERASE INCREASED [None]
  - ASPARTATE AMINOTRANSFERASE INCREASED [None]
  - LIVER TRANSPLANT REJECTION [None]
